FAERS Safety Report 8427813-3 (Version None)
Quarter: 2012Q2

REPORT INFORMATION
  Report Type: 
  Country: None (occurrence: None)
  Receive Date: 20120323
  Receipt Date: 20111128
  Transmission Date: 20120825
  Serious: Yes (Other)
  Sender: FDA-Public Use
  Company Number: 163-21880-11114124

PATIENT
  Age: 68 Year
  Sex: Female

DRUGS (2)
  1. REVLIMID [Suspect]
     Indication: MULTIPLE MYELOMA
     Dosage: 25 MG, DAILY ON DAY 1-14 OF EACH 2D CYCLE, PO
     Route: 048
  2. BLOOD PRESSURE MEDICATION (ALL OTHER THERAPEUTIC PRODUCTS) [Concomitant]

REACTIONS (4)
  - HYPOTENSION [None]
  - SYNCOPE [None]
  - NEUROPATHY PERIPHERAL [None]
  - DIZZINESS [None]
